FAERS Safety Report 8554699-9 (Version None)
Quarter: 2012Q3

REPORT INFORMATION
  Report Type: 
  Country: None (occurrence: None)
  Receive Date: 20120725
  Receipt Date: 20120725
  Transmission Date: 20120928
  Serious: Yes (Hospitalization)
  Sender: FDA-Public Use
  Company Number: None

PATIENT
  Age: 80 Year
  Sex: Male
  Weight: 90.2 kg

DRUGS (2)
  1. PIPERACILLIN AND TAZOBACTAM [Suspect]
     Indication: ABSCESS
     Dosage: 4.5 MG TID IV
     Route: 042
     Dates: start: 20120420, end: 20120502
  2. CIPROFLOXACIN [Suspect]
     Indication: ABSCESS
     Dosage: 400 MG BID IV
     Route: 042
     Dates: start: 20120502, end: 20120509

REACTIONS (2)
  - ABDOMINAL PAIN [None]
  - CLOSTRIDIAL INFECTION [None]
